FAERS Safety Report 6023287-0 (Version None)
Quarter: 2008Q4

REPORT INFORMATION
  Report Type: 
  Country: None (occurrence: None)
  Receive Date: 20081222
  Receipt Date: 20081027
  Transmission Date: 20090506
  Serious: No
  Sender: FDA-Public Use
  Company Number: SPV1-2008-02338

PATIENT
  Age: 11 Year
  Sex: Male
  Weight: 51.7 kg

DRUGS (3)
  1. VYVANSE [Suspect]
     Indication: ATTENTION DEFICIT/HYPERACTIVITY DISORDER
     Dosage: 20 MG, 1X/DAY:QD, ORAL
     Route: 048
  2. SEROQUEL [Concomitant]
  3. RISPERDAL [Concomitant]

REACTIONS (1)
  - CRYING [None]
